FAERS Safety Report 25929222 (Version 3)
Quarter: 2025Q4

REPORT INFORMATION
  Report Type: Spontaneous
  Country: US (occurrence: US)
  Receive Date: 20251016
  Receipt Date: 20251104
  Transmission Date: 20260118
  Serious: Yes (Hospitalization, Other)
  Sender: AUROBINDO
  Company Number: US-MLMSERVICE-20250919-PI650590-00271-2

PATIENT
  Age: 45 Year
  Sex: Male
  Weight: 80 kg

DRUGS (6)
  1. PREDNISONE [Suspect]
     Active Substance: PREDNISONE
     Indication: Glomerulonephritis minimal lesion
     Dosage: 60 MILLIGRAM, ONCE A DAY
     Route: 048
     Dates: start: 2018, end: 2018
  2. PREDNISONE [Suspect]
     Active Substance: PREDNISONE
     Indication: Tubulointerstitial nephritis
     Dosage: 60 MILLIGRAM, ONCE A DAY
     Route: 048
     Dates: start: 20180806, end: 20180813
  3. PREDNISONE [Suspect]
     Active Substance: PREDNISONE
     Indication: Renal tubular injury
     Dosage: 40 MILLIGRAM, ONCE A DAY
     Route: 048
     Dates: start: 20180813, end: 20180815
  4. PREDNISONE [Suspect]
     Active Substance: PREDNISONE
     Indication: IgA nephropathy
  5. DICLOFENAC [Suspect]
     Active Substance: DICLOFENAC
     Indication: Gout
     Dosage: 100 DOSAGE FORM
     Route: 048
     Dates: start: 201707, end: 2017
  6. DICLOFENAC [Suspect]
     Active Substance: DICLOFENAC
     Dosage: 1 DOSAGE FORM
     Route: 048
     Dates: start: 2018, end: 2018

REACTIONS (9)
  - Nephrotic syndrome [Recovered/Resolved]
  - Tubulointerstitial nephritis [Recovered/Resolved]
  - IgA nephropathy [Recovered/Resolved]
  - Renal tubular injury [Recovered/Resolved]
  - Glomerulonephritis minimal lesion [Recovered/Resolved]
  - Renal tubular necrosis [Unknown]
  - Intentional product misuse [Recovered/Resolved]
  - Vision blurred [Recovered/Resolved]
  - Off label use [Unknown]

NARRATIVE: CASE EVENT DATE: 20180101
